FAERS Safety Report 8376005-5 (Version None)
Quarter: 2012Q2

REPORT INFORMATION
  Report Type: 
  Country: None (occurrence: None)
  Receive Date: 20120522
  Receipt Date: 20120510
  Transmission Date: 20120825
  Serious: Yes (Other)
  Sender: FDA-Public Use
  Company Number: US-SANOFI-AVENTIS-2012SA028023

PATIENT
  Age: 20 Year
  Sex: Female

DRUGS (1)
  1. ALLEGRA-D 12 HOUR [Suspect]

REACTIONS (2)
  - CHOKING [None]
  - DYSPHAGIA [None]
